FAERS Safety Report 5900576-9 (Version None)
Quarter: 2008Q3

REPORT INFORMATION
  Report Type: 
  Country: None (occurrence: None)
  Receive Date: 20080926
  Receipt Date: 20080918
  Transmission Date: 20090109
  Serious: Yes (Hospitalization)
  Sender: FDA-Public Use
  Company Number: DE-PFIZER INC-2008071376

PATIENT
  Sex: Male
  Weight: 131 kg

DRUGS (5)
  1. CELEBREX [Suspect]
     Indication: OSTEOARTHRITIS
     Route: 048
     Dates: start: 20060927, end: 20080812
  2. RAMIPRIL [Concomitant]
     Indication: HYPERTENSION
     Dosage: DAILY DOSE:5MG
     Route: 048
     Dates: start: 20000101
  3. STARLIX [Concomitant]
     Indication: DIABETES MELLITUS
     Dosage: DAILY DOSE:120MG
     Route: 048
     Dates: start: 20010101
  4. GLUCOBAY [Concomitant]
     Indication: DIABETES MELLITUS
     Dosage: DAILY DOSE:50MG
     Route: 048
     Dates: start: 19980101
  5. LASIX [Concomitant]
     Dates: start: 20010101

REACTIONS (1)
  - PANCREATIC CARCINOMA [None]
